FAERS Safety Report 5663265-4 (Version None)
Quarter: 2008Q1

REPORT INFORMATION
  Report Type: 
  Country: None (occurrence: None)
  Receive Date: 20080313
  Receipt Date: 20080312
  Transmission Date: 20080703
  Serious: Yes (Other)
  Sender: FDA-Public Use
  Company Number: A0714839A

PATIENT
  Age: 29 Year
  Sex: Female
  Weight: 79.5 kg

DRUGS (2)
  1. ALLI [Suspect]
     Dates: start: 20080202, end: 20080228
  2. CENTRUM [Concomitant]

REACTIONS (7)
  - CONSTIPATION [None]
  - FAECAL VOLUME INCREASED [None]
  - FAECES HARD [None]
  - FREQUENT BOWEL MOVEMENTS [None]
  - INFREQUENT BOWEL MOVEMENTS [None]
  - PAINFUL DEFAECATION [None]
  - RECTAL HAEMORRHAGE [None]
